FAERS Safety Report 23163108 (Version 2)
Quarter: 2024Q1

REPORT INFORMATION
  Report Type: Spontaneous
  Country: FR (occurrence: FR)
  Receive Date: 20231109
  Receipt Date: 20240103
  Transmission Date: 20240410
  Serious: Yes (Death, Hospitalization)
  Sender: FDA-Public Use
  Company Number: None

PATIENT
  Age: 75 Year
  Weight: 81 kg

DRUGS (3)
  1. NEBIVOLOL [Suspect]
     Active Substance: NEBIVOLOL
     Indication: Product used for unknown indication
     Dosage: DOSAGE TEXT: UNIT DOSE : 5 MG ; FREQUENCY TIME :1 DAY
     Route: 048
  2. YERVOY [Suspect]
     Active Substance: IPILIMUMAB
     Indication: Metastatic malignant melanoma
     Dosage: TIME INTERVAL: 1 CYCLICAL: DOSAGE TEXT: UNIT DOSE : 171 MG ; FREQUENCY TIME :1 CYCLICAL;  DURATIO...
     Route: 042
     Dates: start: 20230330, end: 20230601
  3. OPDIVO [Suspect]
     Active Substance: NIVOLUMAB
     Indication: Metastatic malignant melanoma
     Dosage: TIME INTERVAL: 1 CYCLICAL: DOSAGE TEXT: UNIT DOSE : 240 MG ; FREQUENCY TIME :1 CYCLICAL; DURATION...
     Route: 042
     Dates: start: 20230706, end: 20230914

REACTIONS (2)
  - Circulatory collapse [Fatal]
  - Hepatitis [Fatal]

NARRATIVE: CASE EVENT DATE: 20230801
